FAERS Safety Report 15029133 (Version 1)
Quarter: 2018Q2

REPORT INFORMATION
  Report Type: Spontaneous
  Country: DE (occurrence: DE)
  Receive Date: 20180619
  Receipt Date: 20180619
  Transmission Date: 20180711
  Serious: Yes (Hospitalization)
  Sender: FDA-Public Use
  Company Number: DE-TEVA-2018-DE-911688

PATIENT
  Age: 74 Year
  Sex: Male

DRUGS (8)
  1. GEMCITABINE [Suspect]
     Active Substance: GEMCITABINE\GEMCITABINE HYDROCHLORIDE
     Dosage: NK MG, NK
     Route: 065
  2. PANTOPRAZOL [Concomitant]
     Active Substance: PANTOPRAZOLE SODIUM
     Dosage: 1-0-1-0
  3. FENTANYL. [Concomitant]
     Active Substance: FENTANYL
     Dosage: 200 ?G, BEDARF
  4. OXYCODONE [Concomitant]
     Active Substance: OXYCODONE
     Dosage: 1-1-1-1
  5. METAMIZOL [Concomitant]
     Active Substance: METAMIZOLE SODIUM
     Dosage: NK MG, 40-40-40-40, DROP
  6. ALUMINIUM HYDROXIDE [Concomitant]
     Active Substance: ALUMINUM HYDROXIDE
     Dosage: NK MG, NEED
  7. CISPLATIN. [Suspect]
     Active Substance: CISPLATIN
     Dosage: NK MG, NK
     Route: 065
  8. MACROGOL [Concomitant]
     Active Substance: POLYETHYLENE GLYCOLS
     Dosage: NK MG, BEDARF

REACTIONS (4)
  - Asthenia [Unknown]
  - Decreased appetite [Unknown]
  - Pyrexia [Unknown]
  - Fatigue [Unknown]
